FAERS Safety Report 8990209 (Version 2)
Quarter: 2013Q1

REPORT INFORMATION
  Report Type: Spontaneous
  Country: DK (occurrence: DK)
  Receive Date: 20121228
  Receipt Date: 20130117
  Transmission Date: 20140127
  Serious: Yes (Other)
  Sender: FDA-Public Use
  Company Number: DK-ARROW-2012-22788

PATIENT
  Sex: Female

DRUGS (7)
  1. LAMOTRIGINE (UNKNOWN) [Suspect]
     Indication: DEPRESSION
     Dosage: UNK, UNKNOWN
     Route: 065
     Dates: start: 20110512
  2. METHOTREXATE [Suspect]
     Indication: ARTHRITIS
     Dosage: 15 MG, 1/WEEK
     Route: 065
     Dates: start: 20110517
  3. EFEXOR [Suspect]
     Indication: DEPRESSION
     Dosage: 375 MG, DAILY
     Route: 065
     Dates: start: 20100622
  4. AGOMELATINE [Suspect]
     Indication: DEPRESSION
     Dosage: UNK, UNKNOWN
     Route: 065
     Dates: start: 20110324
  5. FOLIMET [Concomitant]
     Indication: PROPHYLAXIS
     Dosage: 5 MG, 1/WEEK
     Route: 065
  6. ETHINYLESTRADIOL [Concomitant]
     Indication: PROPHYLAXIS
     Dosage: UNK, UNKNOWN
     Route: 065
     Dates: start: 2000
  7. IBUPROFEN [Concomitant]
     Indication: BACK INJURY
     Dosage: 600 MG, PRN
     Route: 065
     Dates: start: 200102

REACTIONS (11)
  - Dyskinesia [Recovering/Resolving]
  - Anorgasmia [Unknown]
  - Hyperhidrosis [Unknown]
  - Libido decreased [Unknown]
  - Tremor [Recovering/Resolving]
  - Amnesia [Recovering/Resolving]
  - Disturbance in attention [Recovering/Resolving]
  - Insomnia [Recovering/Resolving]
  - Nightmare [Recovering/Resolving]
  - Hot flush [Recovering/Resolving]
  - Anxiety [Recovering/Resolving]
